FAERS Safety Report 9163446 (Version 2)
Quarter: 2014Q3

REPORT INFORMATION
  Report Type: Spontaneous
  Country: US (occurrence: None)
  Receive Date: 20130226
  Receipt Date: 20140818
  Transmission Date: 20150326
  Serious: Yes (Hospitalization)
  Sender: FDA-Public Use
  Company Number: DKLU1088941

PATIENT
  Age: 16 Year
  Sex: Male

DRUGS (8)
  1. ELSPAR [Suspect]
     Active Substance: ASPARAGINASE
     Indication: ACUTE LYMPHOCYTIC LEUKAEMIA
     Dates: start: 20120902
  2. ETOPOSIDE. [Suspect]
     Active Substance: ETOPOSIDE
     Indication: ACUTE LYMPHOCYTIC LEUKAEMIA
     Dates: start: 20120830, end: 20120901
  3. DEXAMETHASONE. [Suspect]
     Active Substance: DEXAMETHASONE
     Indication: ACUTE LYMPHOCYTIC LEUKAEMIA
     Dates: start: 20120828, end: 20120901
  4. SPRYCEL [Suspect]
     Active Substance: DASATINIB
     Indication: ACUTE LYMPHOCYTIC LEUKAEMIA
     Dosage: 1 IN 1 D DAY
     Route: 048
     Dates: start: 20120426, end: 20120902
  5. METHOTREXATE [Suspect]
     Active Substance: METHOTREXATE
     Indication: ACUTE LYMPHOCYTIC LEUKAEMIA
     Dates: start: 20120901
  6. VINCRISTINE [Suspect]
     Active Substance: VINCRISTINE
     Indication: ACUTE LYMPHOCYTIC LEUKAEMIA
  7. ARA-C [Suspect]
     Active Substance: CYTARABINE
     Indication: ACUTE LYMPHOCYTIC LEUKAEMIA
     Dates: start: 20120828, end: 20120829
  8. DOXORUBICIN [Suspect]
     Active Substance: DOXORUBICIN
     Indication: ACUTE LYMPHOCYTIC LEUKAEMIA

REACTIONS (12)
  - Klebsiella sepsis [None]
  - Colitis [None]
  - Pneumonia klebsiella [None]
  - Haemodialysis [None]
  - Renal failure acute [None]
  - Respiratory distress [None]
  - Pleural effusion [None]
  - Peritonitis [None]
  - Haemorrhage [None]
  - Gastrointestinal necrosis [None]
  - Intestinal perforation [None]
  - Blood potassium increased [None]

NARRATIVE: CASE EVENT DATE: 20120907
